FAERS Safety Report 4771017-2 (Version None)
Quarter: 2005Q3

REPORT INFORMATION
  Report Type: 
  Country: None (occurrence: None)
  Receive Date: 20050915
  Receipt Date: 20050901
  Transmission Date: 20060218
  Serious: Yes (Hospitalization)
  Sender: FDA-Public Use
  Company Number: US-KINGPHARMUSA00001-K200501153

PATIENT
  Age: 61 Year
  Sex: Male

DRUGS (9)
  1. ALTACE [Suspect]
     Dosage: 5 MG, QD
     Route: 048
     Dates: end: 20050607
  2. ALTACE [Suspect]
     Dosage: 5 MG, QD
     Route: 048
  3. XEFO [Suspect]
     Indication: JAW DISORDER
     Dosage: 8 MG, BID
     Route: 048
     Dates: start: 20050601, end: 20050607
  4. DAFALGAN [Suspect]
     Indication: JAW DISORDER
     Dosage: 1 G, TID
     Route: 048
     Dates: start: 20050601, end: 20050607
  5. DAFALGAN [Suspect]
     Dosage: 1 G, TID
     Route: 048
  6. TRAMADOL HCL [Concomitant]
     Indication: JAW DISORDER
     Route: 048
     Dates: start: 20050601, end: 20050601
  7. TORSEMIDE [Concomitant]
     Dosage: 10 MG, UNK
     Route: 048
     Dates: end: 20050601
  8. SURMONTIL [Concomitant]
     Dosage: UNK, QD
     Route: 048
     Dates: end: 20050607
  9. INTRON A [Concomitant]
     Dosage: 18,000 IU, TIW

REACTIONS (19)
  - ACTINOMYCOSIS [None]
  - ATRIAL FIBRILLATION [None]
  - BLOOD CREATININE INCREASED [None]
  - CARDIAC FAILURE [None]
  - CARDIOGENIC SHOCK [None]
  - DRUG INTERACTION [None]
  - DYSPNOEA EXERTIONAL [None]
  - HYPOTENSION [None]
  - JAW DISORDER [None]
  - MITRAL VALVE INCOMPETENCE [None]
  - MULTIPLE MYELOMA [None]
  - NAUSEA [None]
  - OEDEMA PERIPHERAL [None]
  - PNEUMONIA [None]
  - RENAL FAILURE ACUTE [None]
  - SEPSIS [None]
  - TACHYCARDIA [None]
  - TRICUSPID VALVE INCOMPETENCE [None]
  - URINE OUTPUT DECREASED [None]
